FAERS Safety Report 5079614-4 (Version None)
Quarter: 2006Q3

REPORT INFORMATION
  Report Type: 
  Country: None (occurrence: None)
  Receive Date: 20060814
  Receipt Date: 20060809
  Transmission Date: 20061208
  Serious: Yes (Hospitalization)
  Sender: FDA-Public Use
  Company Number: JP-BOEHRINGER INGELHEIM PHARMACEUTICALS, INC.-2006-BP-09269NB

PATIENT
  Sex: Male

DRUGS (9)
  1. MICARDIS [Suspect]
     Indication: ESSENTIAL HYPERTENSION
     Route: 048
     Dates: start: 20041008, end: 20041109
  2. BUFFERIN [Concomitant]
     Route: 048
     Dates: start: 20041008
  3. AMLODIN [Concomitant]
     Route: 048
     Dates: start: 20041008
  4. DEPAS [Concomitant]
     Route: 048
     Dates: start: 20041008
  5. SIGMART [Concomitant]
     Route: 048
     Dates: start: 20041008
  6. NITOROL [Concomitant]
     Route: 048
     Dates: start: 20041008
  7. MUCOSTA [Concomitant]
     Route: 048
     Dates: start: 20041008
  8. CEROCRAL [Concomitant]
     Route: 048
     Dates: start: 20041008
  9. ZONISAMIDE [Concomitant]
     Route: 048
     Dates: start: 20041008

REACTIONS (1)
  - PNEUMONIA [None]
